FAERS Safety Report 8660488 (Version 3)
Quarter: 2012Q4

REPORT INFORMATION
  Report Type: 
  Country: AU (occurrence: AU)
  Receive Date: 20120711
  Receipt Date: 20121025
  Transmission Date: 20130627
  Serious: Yes (Hospitalization)
  Sender: FDA-Public Use
  Company Number: AU-009507513-1207AUS000327

PATIENT
  Age: 86 Year
  Sex: Female

DRUGS (2)
  1. SAPHRIS [Suspect]
     Route: 060
  2. LITHIUM [Concomitant]

REACTIONS (1)
  - Mania [Unknown]
